FAERS Safety Report 13331548 (Version 1)
Quarter: 2017Q1

REPORT INFORMATION
  Report Type: Spontaneous
  Country: GB (occurrence: GB)
  Receive Date: 20170313
  Receipt Date: 20170313
  Transmission Date: 20170428
  Serious: Yes (Hospitalization)
  Sender: FDA-Public Use
  Company Number: GB-PFIZER INC-2017105379

PATIENT
  Age: 84 Year
  Sex: Female

DRUGS (12)
  1. CLOPIDOGREL [Concomitant]
     Active Substance: CLOPIDOGREL BISULFATE
  2. DOCUSATE [Concomitant]
     Active Substance: DOCUSATE
  3. LISINOPRIL. [Concomitant]
     Active Substance: LISINOPRIL
  4. OMEPRAZOLE. [Concomitant]
     Active Substance: OMEPRAZOLE
  5. ASPIRIN /00002701/ [Concomitant]
     Active Substance: ASPIRIN
  6. BUMETANIDE. [Concomitant]
     Active Substance: BUMETANIDE
  7. DIAZEPAM. [Concomitant]
     Active Substance: DIAZEPAM
  8. ATORVASTATIN [Concomitant]
     Active Substance: ATORVASTATIN
  9. PREGABALIN. [Suspect]
     Active Substance: PREGABALIN
     Dosage: 70 MG, 1X/DAY AT NIGHT
  10. AMLODIPINE [Concomitant]
     Active Substance: AMLODIPINE BESYLATE
  11. PARACETAMOL [Concomitant]
     Active Substance: ACETAMINOPHEN
  12. ISOSORBIDE MONONITRATE. [Concomitant]
     Active Substance: ISOSORBIDE MONONITRATE

REACTIONS (2)
  - Electrocardiogram QT prolonged [Recovered/Resolved]
  - Seizure [Unknown]
